FAERS Safety Report 9496857 (Version 1)
Quarter: 2013Q3

REPORT INFORMATION
  Report Type: Spontaneous
  Country: US (occurrence: None)
  Receive Date: 20130903
  Receipt Date: 20130903
  Transmission Date: 20140515
  Serious: No
  Sender: FDA-Public Use
  Company Number: None

PATIENT
  Age: 45 Year
  Sex: Female
  Weight: 81.65 kg

DRUGS (1)
  1. ADVIL [Suspect]
     Indication: DYSMENORRHOEA

REACTIONS (5)
  - Rash [None]
  - Throat irritation [None]
  - Urticaria [None]
  - Hysterectomy [None]
  - Hypersensitivity [None]
